FAERS Safety Report 21261322 (Version 1)
Quarter: 2022Q3

REPORT INFORMATION
  Report Type: Report from Study
  Country: DE (occurrence: DE)
  Receive Date: 20220827
  Receipt Date: 20220827
  Transmission Date: 20221027
  Serious: Yes (Other)
  Sender: FDA-Public Use
  Company Number: DE-CELLTRION INC.-2022DE013477

PATIENT

DRUGS (5)
  1. TRASTUZUMAB [Suspect]
     Active Substance: TRASTUZUMAB
     Indication: Breast cancer
     Dosage: DATE AND DOSE OF LAST ADMINISTRATION PRIOR EVENT ON 21/JUL/2022 IS 546MG. FREQUENCY PER CYCLE.DATE A
     Route: 065
     Dates: start: 20220405
  2. PACLITAXEL [Suspect]
     Active Substance: PACLITAXEL
     Indication: Breast cancer
     Dosage: DATE AND DOSE OF LAST ADMINISTRATION PRIOR EVENT ON 21/JUL/2022 IS 162MG. FREQUENCY PER CYCLE.DATE A
     Route: 065
     Dates: start: 20220405
  3. CARBOPLATIN [Suspect]
     Active Substance: CARBOPLATIN
     Indication: Breast cancer
     Dosage: DATE AND DOSE OF LAST ADMINISTRATION PRIOR EVENT ON 21/JUL/2022 IS 690MG. FREQUENCY PER CYCLE.DATE A
     Route: 065
     Dates: start: 20220405
  4. PERTUZUMAB [Suspect]
     Active Substance: PERTUZUMAB
     Indication: Breast cancer
     Dosage: DATE AND DOSE OF LAST ADMINISTRATION PRIOR EVENT ON 21/JUL/2022 IS 420MG. FREQUENCY PER CYCLE.DATE A
     Route: 065
     Dates: start: 20220405
  5. PEGFILGRASTIM [Concomitant]
     Active Substance: PEGFILGRASTIM
     Dosage: UNK, QD
     Dates: start: 20220729, end: 20220730

REACTIONS (3)
  - Neutropenia [Not Recovered/Not Resolved]
  - Polyneuropathy [Not Recovered/Not Resolved]
  - Intentional product use issue [Unknown]

NARRATIVE: CASE EVENT DATE: 20220701
